FAERS Safety Report 13658357 (Version 2)
Quarter: 2017Q3

REPORT INFORMATION
  Report Type: Report from Study
  Country: None (occurrence: IL)
  Receive Date: 20170616
  Receipt Date: 20170811
  Transmission Date: 20171127
  Serious: Yes (Life-Threatening, Hospitalization)
  Sender: FDA-Public Use
  Company Number: IL-ABBVIE-17K-082-2008703-00

PATIENT
  Sex: Female

DRUGS (1)
  1. DUODOPA [Suspect]
     Active Substance: CARBIDOPA\LEVODOPA
     Indication: PARKINSON^S DISEASE
     Dosage: MORNING DOSE:8.6ML??CONTINUES RATE:2.4ML/HOUR??CURRENT ED: 1ML
     Route: 050
     Dates: start: 20131121

REACTIONS (4)
  - Fall [Unknown]
  - Delusion [Unknown]
  - Head injury [Unknown]
  - Hallucination [Unknown]
